FAERS Safety Report 13814066 (Version 1)
Quarter: 2017Q3

REPORT INFORMATION
  Report Type: Spontaneous
  Country: US (occurrence: US)
  Receive Date: 20170731
  Receipt Date: 20170731
  Transmission Date: 20171127
  Serious: No
  Sender: FDA-Public Use
  Company Number: US-PFIZER INC-2017327209

PATIENT
  Age: 67 Year
  Sex: Female

DRUGS (2)
  1. METHOTREXATE SODIUM. [Suspect]
     Active Substance: METHOTREXATE SODIUM
     Dosage: 17.5 MG, WEEKLY
  2. PIROXICAM. [Suspect]
     Active Substance: PIROXICAM
     Dosage: 20 MG, DAILY

REACTIONS (13)
  - Arthralgia [Unknown]
  - Erythema [Unknown]
  - Joint warmth [Unknown]
  - Pain [Unknown]
  - Gait disturbance [Unknown]
  - Muscular weakness [Unknown]
  - Peripheral swelling [Unknown]
  - Tenderness [Unknown]
  - Musculoskeletal stiffness [Unknown]
  - Joint swelling [Unknown]
  - Fatigue [Unknown]
  - Joint stiffness [Unknown]
  - Weight decreased [Unknown]
